FAERS Safety Report 7791837-X (Version None)
Quarter: 2011Q4

REPORT INFORMATION
  Report Type: 
  Country: None (occurrence: None)
  Receive Date: 20111003
  Receipt Date: 20110922
  Transmission Date: 20120403
  Serious: Yes (Hospitalization)
  Sender: FDA-Public Use
  Company Number: IT-SANOFI-AVENTIS-2011SA062729

PATIENT
  Age: 80 Year
  Sex: Male

DRUGS (11)
  1. PREDNISONE [Suspect]
     Indication: PROSTATE CANCER
     Route: 048
     Dates: start: 20110601, end: 20110601
  2. LANSOPRAZOLE [Concomitant]
     Indication: PROPHYLAXIS
     Route: 048
     Dates: start: 20020920
  3. DOCETAXEL [Suspect]
     Indication: PROSTATE CANCER
     Route: 042
     Dates: start: 20110601, end: 20110601
  4. LENALIDOMIDE [Suspect]
     Indication: PROSTATE CANCER
     Route: 048
     Dates: start: 20110601, end: 20110614
  5. PHENOBARBITAL TAB [Concomitant]
     Indication: PROPHYLAXIS
     Route: 048
     Dates: start: 20020920
  6. FILGRASTIM [Concomitant]
     Indication: NEUTROPENIA
     Route: 058
     Dates: start: 20110808, end: 20110812
  7. PREDNISONE [Suspect]
     Route: 048
     Dates: start: 20110805, end: 20110824
  8. LENALIDOMIDE [Suspect]
     Route: 048
     Dates: start: 20110805, end: 20110818
  9. FUROSEMIDE [Concomitant]
     Route: 048
     Dates: start: 20020920
  10. DOCETAXEL [Suspect]
     Route: 042
     Dates: start: 20110805, end: 20110805
  11. TICLOPIDINE HCL [Concomitant]
     Route: 048
     Dates: start: 20020920

REACTIONS (1)
  - TRANSIENT ISCHAEMIC ATTACK [None]
